FAERS Safety Report 17567481 (Version 3)
Quarter: 2021Q1

REPORT INFORMATION
  Report Type: Spontaneous
  Country: US (occurrence: US)
  Receive Date: 20200320
  Receipt Date: 20210112
  Transmission Date: 20210419
  Serious: Yes (Hospitalization)
  Sender: FDA-Public Use
  Company Number: US-VERTEX PHARMACEUTICALS-2020-004957

PATIENT
  Age: 19 Year
  Sex: Female

DRUGS (4)
  1. VITAMIN D3 [Concomitant]
     Active Substance: CHOLECALCIFEROL
     Dosage: 5000 INTERNATIONAL UNIT, BID, CAPSULE
     Route: 048
  2. OMADACYCLINE. [Concomitant]
     Active Substance: OMADACYCLINE
     Dosage: 300 MG, QD, TABLET
     Route: 048
  3. SYMDEKO [Suspect]
     Active Substance: IVACAFTOR\TEZACAFTOR
     Indication: CYSTIC FIBROSIS
     Dosage: 100MGTEZACAFTOR/150MGIVACAFTOR AND150MG IVACAFTOR, BID
     Route: 048
     Dates: start: 201805, end: 201912
  4. ACETYLCYSTEINE. [Concomitant]
     Active Substance: ACETYLCYSTEINE
     Dosage: 600 MG, QD, CAPSULE
     Route: 048

REACTIONS (2)
  - Acne [Recovered/Resolved]
  - Infective pulmonary exacerbation of cystic fibrosis [Recovered/Resolved]

NARRATIVE: CASE EVENT DATE: 201911
